FAERS Safety Report 22635166 (Version 1)
Quarter: 2023Q2

REPORT INFORMATION
  Report Type: Spontaneous
  Country: GB (occurrence: GB)
  Receive Date: 20230623
  Receipt Date: 20230623
  Transmission Date: 20230722
  Serious: Yes (Other)
  Sender: FDA-Public Use
  Company Number: GB-MHRA-MED-202305151107005680-HQKYR

PATIENT

DRUGS (12)
  1. FERROUS SULFATE [Suspect]
     Active Substance: FERROUS SULFATE
     Indication: Product used for unknown indication
     Dosage: UNK
     Route: 065
  2. ASPARAGUS [Suspect]
     Active Substance: ASPARAGUS
     Indication: Product used for unknown indication
     Dosage: UNK
     Route: 065
  3. CINNAMOMUM CAMPHORA LEAFY TWIG [Suspect]
     Active Substance: CINNAMOMUM CAMPHORA LEAFY TWIG
     Indication: Product used for unknown indication
     Dosage: UNK
     Route: 065
  4. HERBALS [Suspect]
     Active Substance: HERBALS
     Indication: Product used for unknown indication
     Dosage: UNK
     Route: 065
  5. SAFFRON [Suspect]
     Active Substance: SAFFRON
     Indication: Product used for unknown indication
     Dosage: UNK
     Route: 065
  6. HERBALS\NUTMEG [Suspect]
     Active Substance: HERBALS\NUTMEG
     Indication: Product used for unknown indication
     Dosage: UNK
     Route: 065
  7. NUX VOMICA [Suspect]
     Active Substance: STRYCHNOS NUX-VOMICA SEED
     Indication: Product used for unknown indication
     Dosage: UNK
     Route: 065
  8. HERBALS [Suspect]
     Active Substance: HERBALS
     Indication: Product used for unknown indication
     Dosage: UNK
     Route: 065
  9. SYZYGIUM AROMATICUM FRUIT [Suspect]
     Active Substance: SYZYGIUM AROMATICUM FRUIT
     Indication: Product used for unknown indication
     Dosage: UNK
     Route: 065
  10. HERBALS [Suspect]
     Active Substance: HERBALS
     Indication: Product used for unknown indication
     Dosage: UNK
     Route: 065
  11. HERBALS [Suspect]
     Active Substance: HERBALS
     Indication: Product used for unknown indication
     Dosage: UNK
     Route: 065
  12. GINGER [Suspect]
     Active Substance: GINGER
     Indication: Product used for unknown indication
     Dosage: UNK
     Route: 065

REACTIONS (1)
  - Joint swelling [Recovering/Resolving]
